FAERS Safety Report 8467401-6 (Version None)
Quarter: 2012Q2

REPORT INFORMATION
  Report Type: 
  Country: None (occurrence: None)
  Receive Date: 20120626
  Receipt Date: 20120619
  Transmission Date: 20120825
  Serious: Yes (Other)
  Sender: FDA-Public Use
  Company Number: PHHY2012BR054402

PATIENT
  Sex: Female

DRUGS (1)
  1. AMLODIPINE [Suspect]
     Indication: HYPERTENSION
     Dosage: 1 DF (320/10 MG), DAILY

REACTIONS (3)
  - SKIN LESION [None]
  - SKIN ULCER [None]
  - PRURITUS [None]
